FAERS Safety Report 18079449 (Version 1)
Quarter: 2020Q3

REPORT INFORMATION
  Report Type: Spontaneous
  Country: US (occurrence: US)
  Receive Date: 20200727
  Receipt Date: 20200727
  Transmission Date: 20201103
  Serious: Yes (Hospitalization)
  Sender: FDA-Public Use
  Company Number: None

PATIENT
  Age: 50 Year
  Sex: Female

DRUGS (2)
  1. TACROLIMUS 1 MG [Suspect]
     Active Substance: TACROLIMUS
     Route: 048
     Dates: start: 20170530
  2. MYCOPHENOLATE 500MG [Suspect]
     Active Substance: MYCOPHENOLIC ACID
     Indication: RENAL TRANSPLANT
     Route: 048
     Dates: start: 20170516

REACTIONS (2)
  - Cardiac operation [None]
  - Therapy interrupted [None]

NARRATIVE: CASE EVENT DATE: 202004
